FAERS Safety Report 25526764 (Version 1)
Quarter: 2025Q3

REPORT INFORMATION
  Report Type: Spontaneous
  Country: TW (occurrence: TW)
  Receive Date: 20250707
  Receipt Date: 20250707
  Transmission Date: 20251021
  Serious: Yes (Hospitalization, Other)
  Sender: GILEAD
  Company Number: TW-GILEAD-2025-0718931

PATIENT
  Age: 68 Year
  Sex: Male
  Weight: 46.6 kg

DRUGS (6)
  1. VEKLURY [Suspect]
     Active Substance: REMDESIVIR
     Indication: COVID-19
     Dosage: 100 MG, QD
     Route: 041
     Dates: start: 20250512, end: 20250514
  2. OSELTAMIVIR PHOSPHATE [Suspect]
     Active Substance: OSELTAMIVIR PHOSPHATE
     Indication: Product used for unknown indication
     Dosage: 75 MG, BID
     Route: 048
  3. OXYCODONE HYDROCHLORIDE [Suspect]
     Active Substance: OXYCODONE HYDROCHLORIDE
     Indication: Analgesic therapy
     Dosage: 5 MG, Q6H
     Route: 048
     Dates: start: 20250519, end: 20250624
  4. CEFMETAZOLE [Suspect]
     Active Substance: CEFMETAZOLE
     Indication: Infection
     Dosage: 2 G, BID
     Route: 041
     Dates: start: 20250429, end: 20250519
  5. TEICOPLANIN [Suspect]
     Active Substance: TEICOPLANIN
     Indication: Infection
     Dosage: 300 MG, QD
     Route: 065
     Dates: start: 20250502, end: 20250519
  6. MAGNESIUM OXIDE [Suspect]
     Active Substance: MAGNESIUM OXIDE
     Indication: Faeces soft
     Dosage: 500 MG, QD
     Route: 048
     Dates: start: 20250504, end: 20250522

REACTIONS (2)
  - Stevens-Johnson syndrome [Unknown]
  - Toxic epidermal necrolysis [Unknown]

NARRATIVE: CASE EVENT DATE: 20250517
